FAERS Safety Report 7993710-0 (Version None)
Quarter: 2011Q4

REPORT INFORMATION
  Report Type: 
  Country: None (occurrence: None)
  Receive Date: 20111220
  Receipt Date: 20111212
  Transmission Date: 20120403
  Serious: Yes (Hospitalization, Other)
  Sender: FDA-Public Use
  Company Number: US-AMGEN-USASP2011047809

PATIENT
  Age: 70 Year
  Sex: Female

DRUGS (1)
  1. ENBREL [Suspect]
     Indication: MIXED CONNECTIVE TISSUE DISEASE
     Dosage: UNK
     Dates: start: 20051101

REACTIONS (12)
  - NECK PAIN [None]
  - SYNOVIAL CYST [None]
  - BURSITIS [None]
  - KNEE OPERATION [None]
  - TENDON RUPTURE [None]
  - ROTATOR CUFF REPAIR [None]
  - GASTRIC ULCER [None]
  - PELVIC FRACTURE [None]
  - SEPSIS [None]
  - PAIN IN EXTREMITY [None]
  - PAIN [None]
  - MUSCLE STRAIN [None]
